FAERS Safety Report 18042988 (Version 5)
Quarter: 2021Q1

REPORT INFORMATION
  Report Type: Report from Study
  Country: ES (occurrence: ES)
  Receive Date: 20200720
  Receipt Date: 20210225
  Transmission Date: 20210419
  Serious: Yes (Hospitalization, Other)
  Sender: FDA-Public Use
  Company Number: ES-BIOVITRUM-2020ES2929

PATIENT
  Age: 77 Year
  Sex: Female
  Weight: 61 kg

DRUGS (7)
  1. TAAZOBONA [Concomitant]
     Dosage: 100 MG
     Route: 048
     Dates: start: 20200529
  2. MIDAZOLAM. [Concomitant]
     Active Substance: MIDAZOLAM
     Dosage: 2.5 MG
     Route: 058
     Dates: start: 20200525
  3. ACETYLCYSTEINE. [Concomitant]
     Active Substance: ACETYLCYSTEINE
     Dosage: 1200 MG
     Dates: start: 20200601, end: 20200602
  4. ANAKINRA [Suspect]
     Active Substance: ANAKINRA
     Indication: COVID-19
     Route: 042
     Dates: start: 20200523, end: 20200601
  5. PARACETAMOL [Concomitant]
     Active Substance: ACETAMINOPHEN
     Indication: PYREXIA
     Dosage: 1 GM
     Route: 042
     Dates: start: 20200523
  6. PIPERACILLIN AND TAZOBACTAM [Concomitant]
     Active Substance: PIPERACILLIN SODIUM\TAZOBACTAM SODIUM
     Dosage: 4 GM
     Route: 042
     Dates: start: 20200525
  7. PREGABALINA [Concomitant]
     Active Substance: PREGABALIN
     Dosage: 25 MG
     Route: 048
     Dates: start: 20200529

REACTIONS (1)
  - Renal failure [Recovered/Resolved with Sequelae]

NARRATIVE: CASE EVENT DATE: 20200601
